FAERS Safety Report 4916101-5 (Version None)
Quarter: 2006Q1

REPORT INFORMATION
  Report Type: 
  Country: None (occurrence: None)
  Receive Date: 20060113
  Receipt Date: 20051004
  Transmission Date: 20060701
  Serious: No
  Sender: FDA-Public Use
  Company Number: 2005SP003346

PATIENT
  Age: 47 Year
  Sex: Female

DRUGS (7)
  1. LUNESTA [Suspect]
     Indication: INSOMNIA
     Dosage: 3 MG, HS, ORAL
     Route: 048
     Dates: start: 20051003, end: 20050101
  2. CLONAZEPAM [Concomitant]
  3. LISINOPRIL [Concomitant]
  4. CLARITIN [Concomitant]
  5. WELLBUTRIN [Concomitant]
  6. VALIUM [Concomitant]
  7. HYDROCHLOROTHIAZIDE [Concomitant]

REACTIONS (3)
  - DRUG INEFFECTIVE [None]
  - DYSGEUSIA [None]
  - INSOMNIA [None]
